FAERS Safety Report 6257988-6 (Version None)
Quarter: 2009Q3

REPORT INFORMATION
  Report Type: 
  Country: None (occurrence: None)
  Receive Date: 20090702
  Receipt Date: 20090617
  Transmission Date: 20100115
  Serious: Yes (Hospitalization)
  Sender: FDA-Public Use
  Company Number: JP-000395

PATIENT
  Age: 85 Year
  Sex: Male

DRUGS (14)
  1. DEGARELIX (DEGARELIX) INJECTION 240 MG, INJECTION 160 MG [Suspect]
     Indication: PROSTATE CANCER
     Dosage: 1 DAY, 35 WEEKS 0 DAYS
     Route: 058
     Dates: start: 20080929, end: 20080929
  2. VEEN D(VEEN D) [Concomitant]
  3. DIOVANE (VALSARTAN) [Concomitant]
  4. AMLODIPINE [Concomitant]
  5. PRAVATIN (PRAVASTATIN) [Concomitant]
  6. ASPIRIN [Concomitant]
  7. ACONINSUN (ACONITUM NAPELLUS) [Concomitant]
  8. HERBAL PREPARATION (HERBAL PREPARATION) [Concomitant]
  9. INSIDE [Concomitant]
  10. MELOXICAM [Concomitant]
  11. ISOSORBIDE DINITRATE [Concomitant]
  12. CORTICOSTEROIDS, COMB WITH ANTIBIOTICS (CORTICOSTEROIDS, COMB WITH ANT [Concomitant]
  13. MULTIVITAMINS W/MINERALS (MULTIVITAMINS W/ MINERALS) [Concomitant]
  14. CEFDITOREN PIVOXIL (CEFDITOREN PIVOXIL) [Concomitant]

REACTIONS (4)
  - DECREASED APPETITE [None]
  - INTERSTITIAL LUNG DISEASE [None]
  - UPPER RESPIRATORY TRACT INFLAMMATION [None]
  - VENTRICULAR EXTRASYSTOLES [None]
